FAERS Safety Report 4750885-4 (Version None)
Quarter: 2005Q3

REPORT INFORMATION
  Report Type: 
  Country: None (occurrence: None)
  Receive Date: 20050822
  Receipt Date: 20050722
  Transmission Date: 20060218
  Serious: Yes (Death, Hospitalization)
  Sender: FDA-Public Use
  Company Number: 216671

PATIENT
  Age: 81 Year
  Sex: Male
  Weight: 66 kg

DRUGS (5)
  1. AVASTIN [Suspect]
     Indication: COLON CANCER METASTATIC
     Dosage: 503 MG,  Q3W , INTRAVENOUS
     Route: 042
     Dates: start: 20050627
  2. IRINOTECAN HCL [Suspect]
     Indication: COLON CANCER METASTATIC
     Dosage: 425 MG, Q3W, INTRAVENOUS
     Route: 042
     Dates: start: 20050627
  3. CAPECITABINE(CAPECITABINE) [Suspect]
     Indication: COLON CANCER METASTATIC
     Dosage: 1500 MG, BID, ORAL
     Route: 048
     Dates: start: 20050627
  4. ARANESP [Concomitant]
  5. COLACE (DOCUSATE SODIUM) [Concomitant]

REACTIONS (17)
  - ABDOMINAL DISTENSION [None]
  - ABDOMINAL PAIN [None]
  - ASCITES [None]
  - ATELECTASIS [None]
  - BLOOD SODIUM DECREASED [None]
  - HAEMOGLOBIN DECREASED [None]
  - HAEMOGLOBIN URINE PRESENT [None]
  - ILEUS [None]
  - INTESTINAL PERFORATION [None]
  - LUNG INFILTRATION [None]
  - NAUSEA [None]
  - NITRITE URINE PRESENT [None]
  - PLATELET COUNT INCREASED [None]
  - PROTEIN URINE PRESENT [None]
  - RED BLOOD CELLS URINE POSITIVE [None]
  - REFUSAL OF TREATMENT BY PATIENT [None]
  - WHITE BLOOD CELLS URINE POSITIVE [None]
